FAERS Safety Report 24943646 (Version 4)
Quarter: 2025Q4

REPORT INFORMATION
  Report Type: Report from Study
  Country: EU (occurrence: EU)
  Receive Date: 20250207
  Receipt Date: 20251031
  Transmission Date: 20260117
  Serious: Yes (Hospitalization, Other)
  Sender: KYOWA
  Company Number: EU-KYOWAKIRIN-2025KK001928

PATIENT

DRUGS (7)
  1. MOGAMULIZUMAB [Suspect]
     Active Substance: MOGAMULIZUMAB
     Indication: Cutaneous T-cell lymphoma
     Dosage: 80MG (60 MINUTES INFUSION, COMPLETE DOSE ADMINISTERED)
     Route: 042
     Dates: start: 20250117, end: 20250117
  2. MOGAMULIZUMAB [Suspect]
     Active Substance: MOGAMULIZUMAB
     Dosage: 88 MG (60 MINUTES INFUSION, COMPLETE DOSE ADMINISTERED)
     Route: 042
     Dates: start: 20241217, end: 20241217
  3. MOGAMULIZUMAB [Suspect]
     Active Substance: MOGAMULIZUMAB
     Dosage: 88 MG (60 MINUTES INFUSION, COMPLETE DOSE ADMINISTERED)
     Route: 042
     Dates: start: 20241227, end: 20241227
  4. MOGAMULIZUMAB [Suspect]
     Active Substance: MOGAMULIZUMAB
     Dosage: 88 MG (60 MINUTES INFUSION, COMPLETE DOSE ADMINISTERED)
     Route: 042
     Dates: start: 20250103, end: 20250103
  5. MOGAMULIZUMAB [Suspect]
     Active Substance: MOGAMULIZUMAB
     Dosage: 80 MG (60 MINUTES INFUSION, COMPLETE DOSE ADMINISTERED)
     Route: 042
     Dates: start: 20250110, end: 20250110
  6. INTERFERON ALFA NOS [Concomitant]
     Active Substance: INTERFERON ALFA-2A OR INTERFERON ALFA-2B
     Indication: Product used for unknown indication
     Dosage: UNK
     Route: 065
  7. BEXAROTENE [Concomitant]
     Active Substance: BEXAROTENE
     Indication: Product used for unknown indication
     Dosage: UNK
     Route: 065

REACTIONS (1)
  - Hepatic cytolysis [Recovered/Resolved]

NARRATIVE: CASE EVENT DATE: 20250128
